FAERS Safety Report 24619021 (Version 1)
Quarter: 2024Q4

REPORT INFORMATION
  Report Type: Spontaneous
  Country: AT (occurrence: AT)
  Receive Date: 20241114
  Receipt Date: 20241114
  Transmission Date: 20250115
  Serious: Yes (Other)
  Sender: BRISTOL-MYERS SQUIBB COMPANY
  Company Number: AT-BRISTOL-MYERS SQUIBB COMPANY-2024-175430

PATIENT
  Age: 18 Year

DRUGS (1)
  1. MAVACAMTEN [Suspect]
     Active Substance: MAVACAMTEN
     Indication: Hypertrophic cardiomyopathy
     Dosage: DOSE AND FREQUENCY: UNAVAILABLE

REACTIONS (4)
  - Dyspnoea [Recovering/Resolving]
  - Vertigo [Recovering/Resolving]
  - Angina pectoris [Recovering/Resolving]
  - Cardiac failure chronic [Recovering/Resolving]
